FAERS Safety Report 18260626 (Version 2)
Quarter: 2020Q3

REPORT INFORMATION
  Report Type: Report from Study
  Country: CH (occurrence: CH)
  Receive Date: 20200914
  Receipt Date: 20200923
  Transmission Date: 20201103
  Serious: Yes (Hospitalization)
  Sender: FDA-Public Use
  Company Number: CH-ROCHE-2674375

PATIENT
  Age: 71 Year
  Sex: Male
  Weight: 96 kg

DRUGS (4)
  1. CARBOPLATIN. [Suspect]
     Active Substance: CARBOPLATIN
     Indication: PLEURAL MESOTHELIOMA MALIGNANT
     Dosage: DATE OF LAST ADMINISTRATION BEFORE SAE 02/SEP/2020
     Route: 042
     Dates: start: 20200814
  2. ATEZOLIZUMAB. [Suspect]
     Active Substance: ATEZOLIZUMAB
     Indication: PLEURAL MESOTHELIOMA MALIGNANT
     Dosage: LAST DOSE PRIOR TO SAE 02/SEP/2020
     Route: 042
     Dates: start: 20200814
  3. BEVACIZUMAB. [Suspect]
     Active Substance: BEVACIZUMAB
     Indication: PLEURAL MESOTHELIOMA MALIGNANT
     Dosage: DATE OF LAST ADMINISTRATION BEFORE SAE 02/SEP/2020
     Route: 042
     Dates: start: 20200814, end: 20200908
  4. PEMETREXED. [Suspect]
     Active Substance: PEMETREXED
     Indication: PLEURAL MESOTHELIOMA MALIGNANT
     Dosage: DATE OF LAST ADMINISTRATION BEFORE SAE 02/SEP/2020
     Route: 042
     Dates: start: 20200814

REACTIONS (1)
  - Angiopathy [Recovered/Resolved]

NARRATIVE: CASE EVENT DATE: 20200907
